FAERS Safety Report 15801153 (Version 1)
Quarter: 2019Q1

REPORT INFORMATION
  Report Type: Report from Study
  Country: None (occurrence: US)
  Receive Date: 20190109
  Receipt Date: 20190109
  Transmission Date: 20190417
  Serious: Yes (Hospitalization)
  Sender: FDA-Public Use
  Company Number: US-ABBVIE-18K-163-2557162-00

PATIENT
  Age: 64 Year
  Sex: Male

DRUGS (1)
  1. HUMIRA [Suspect]
     Active Substance: ADALIMUMAB
     Indication: RHEUMATOID ARTHRITIS
     Route: 058
     Dates: start: 20181005

REACTIONS (14)
  - Hypoaesthesia [Unknown]
  - Dyspnoea [Unknown]
  - Arthralgia [Not Recovered/Not Resolved]
  - Paralysis [Unknown]
  - Gait disturbance [Not Recovered/Not Resolved]
  - Depression [Unknown]
  - Hyperhidrosis [Unknown]
  - Injection site bruising [Recovered/Resolved]
  - Back pain [Not Recovered/Not Resolved]
  - Extrasystoles [Unknown]
  - Anxiety [Unknown]
  - Musculoskeletal stiffness [Unknown]
  - Paraesthesia [Unknown]
  - Pain in extremity [Not Recovered/Not Resolved]

NARRATIVE: CASE EVENT DATE: 2018
